FAERS Safety Report 7875378-7 (Version None)
Quarter: 2011Q4

REPORT INFORMATION
  Report Type: 
  Country: None (occurrence: None)
  Receive Date: 20111031
  Receipt Date: 20111021
  Transmission Date: 20120403
  Serious: Yes (Other)
  Sender: FDA-Public Use
  Company Number: GB-GLAXOSMITHKLINE-B0757226A

PATIENT
  Age: 74 Year
  Sex: Female

DRUGS (1)
  1. FLUTICASONE FUROATE [Suspect]
     Indication: SINUS CONGESTION
     Dosage: 1IUAX PER DAY
     Route: 045
     Dates: start: 20111010, end: 20111012

REACTIONS (3)
  - PALPITATIONS [None]
  - RASH [None]
  - CHILLS [None]
